FAERS Safety Report 7900396-X (Version None)
Quarter: 2011Q4

REPORT INFORMATION
  Report Type: 
  Country: None (occurrence: None)
  Receive Date: 20111108
  Receipt Date: 20111102
  Transmission Date: 20120403
  Serious: Yes (Other)
  Sender: FDA-Public Use
  Company Number: US-PFIZER INC-2011269255

PATIENT
  Sex: Female

DRUGS (3)
  1. ANASTRAZOLE [Suspect]
     Dosage: UNK
     Route: 048
  2. AROMASIN [Suspect]
     Dosage: UNK
     Route: 048
  3. LIPITOR [Concomitant]
     Dosage: UNK
     Route: 048

REACTIONS (1)
  - ARTHRALGIA [None]
